FAERS Safety Report 5502661-2 (Version None)
Quarter: 2007Q4

REPORT INFORMATION
  Report Type: 
  Country: None (occurrence: None)
  Receive Date: 20071029
  Receipt Date: 20071023
  Transmission Date: 20080405
  Serious: Yes (Death, Other)
  Sender: FDA-Public Use
  Company Number: 163-20785-06120554

PATIENT
  Age: 35 Year
  Sex: Male

DRUGS (10)
  1. THALOMID [Suspect]
     Indication: MULTIPLE MYELOMA
     Dosage: 200 MG, QHS, ORAL
     Route: 048
     Dates: start: 20061113, end: 20061212
  2. DECADRON [Concomitant]
  3. OMEPRAZOLE [Concomitant]
  4. OXYCONTIN [Concomitant]
  5. BACTRIM [Concomitant]
  6. ACYCLOVIR [Concomitant]
  7. SENOKOT [Concomitant]
  8. ALLOPURINOL [Concomitant]
  9. DOXORUBICIN HCL [Concomitant]
  10. BORTEZOMIB (BORTEZOMIB) [Concomitant]

REACTIONS (12)
  - ANOREXIA [None]
  - ASTHENIA [None]
  - CONSTIPATION [None]
  - DISEASE PROGRESSION [None]
  - DIZZINESS [None]
  - FATIGUE [None]
  - HEPATIC FAILURE [None]
  - LIGHT CHAIN DISEASE [None]
  - MULTIPLE MYELOMA [None]
  - PLATELET COUNT DECREASED [None]
  - THROMBOCYTOPENIA [None]
  - WEIGHT DECREASED [None]
